FAERS Safety Report 17363258 (Version 1)
Quarter: 2020Q1

REPORT INFORMATION
  Report Type: Spontaneous
  Country: FR (occurrence: FR)
  Receive Date: 20200203
  Receipt Date: 20200203
  Transmission Date: 20200409
  Serious: Yes (Hospitalization, Other)
  Sender: FDA-Public Use
  Company Number: FR-009507513-2001FRA010399

PATIENT
  Age: 80 Year
  Sex: Female

DRUGS (3)
  1. TEMODAL [Suspect]
     Active Substance: TEMOZOLOMIDE
     Indication: PANCREATIC NEUROENDOCRINE TUMOUR
     Dosage: 200 MILLIGRAM, QD
     Route: 065
     Dates: start: 20170519, end: 20181204
  2. SOMATULINE LP [Concomitant]
     Active Substance: LANREOTIDE ACETATE
     Route: 065
     Dates: start: 20120515
  3. XELODA [Suspect]
     Active Substance: CAPECITABINE
     Indication: PANCREATIC NEUROENDOCRINE TUMOUR
     Dosage: 2000 MILLIGRAM, QD
     Route: 048
     Dates: start: 20170510, end: 20181204

REACTIONS (5)
  - Abdominal pain [Recovered/Resolved with Sequelae]
  - General physical health deterioration [Unknown]
  - Renal failure [Not Recovered/Not Resolved]
  - Pain [Unknown]
  - Erysipelas [Recovered/Resolved]

NARRATIVE: CASE EVENT DATE: 20171124
